FAERS Safety Report 12757445 (Version 2)
Quarter: 2016Q3

REPORT INFORMATION
  Report Type: Spontaneous
  Country: GB (occurrence: GB)
  Receive Date: 20160919
  Receipt Date: 20160919
  Transmission Date: 20161109
  Serious: Yes (Other)
  Sender: FDA-Public Use
  Company Number: GB-CIPLA LTD.-2016GB18158

PATIENT

DRUGS (7)
  1. LANSOPRAZOLE. [Concomitant]
     Active Substance: LANSOPRAZOLE
     Dosage: 1 DF, QD, FOR STOMACH
     Route: 065
     Dates: start: 20160301
  2. AMLODIPINE [Suspect]
     Active Substance: AMLODIPINE BESYLATE
     Dosage: UNK
     Route: 065
     Dates: start: 20160405
  3. ATORVASTATIN [Concomitant]
     Active Substance: ATORVASTATIN
     Indication: BLOOD CHOLESTEROL INCREASED
     Dosage: 1 DF, QD
     Route: 065
     Dates: start: 20160729
  4. RAMIPRIL. [Concomitant]
     Active Substance: RAMIPRIL
     Indication: HYPERTENSION
     Dosage: 1 DF, QD
     Route: 065
     Dates: start: 20160301
  5. BISOPROLOL [Concomitant]
     Active Substance: BISOPROLOL
     Dosage: 1 DF, QD
     Route: 065
     Dates: start: 20160301
  6. BENDROFLUMETHIAZIDE [Concomitant]
     Active Substance: BENDROFLUMETHIAZIDE
     Dosage: 1 DF, QD
     Route: 065
     Dates: start: 20160301
  7. DOXAZOSIN [Concomitant]
     Active Substance: DOXAZOSIN\DOXAZOSIN MESYLATE
     Indication: HYPERTENSION
     Dosage: 1 DF, QD
     Route: 065
     Dates: start: 20160818

REACTIONS (1)
  - Blister [Recovering/Resolving]

NARRATIVE: CASE EVENT DATE: 20160815
